FAERS Safety Report 15693577 (Version 1)
Quarter: 2018Q4

REPORT INFORMATION
  Report Type: Spontaneous
  Country: US (occurrence: US)
  Receive Date: 20181126
  Receipt Date: 20181126
  Transmission Date: 20190205
  Serious: No
  Sender: FDA-Public Use
  Company Number: None

PATIENT
  Sex: Female

DRUGS (1)
  1. CETROTIDE [Suspect]
     Active Substance: CETRORELIX ACETATE
     Dosage: ?          OTHER STRENGTH:0.25MG/VL;OTHER DOSE:0.25MG;?
     Route: 058

REACTIONS (3)
  - Erythema [None]
  - Pruritus [None]
  - Drug hypersensitivity [None]
